FAERS Safety Report 12755820 (Version 1)
Quarter: 2016Q3

REPORT INFORMATION
  Report Type: Spontaneous
  Country: US (occurrence: US)
  Receive Date: 20160916
  Receipt Date: 20160916
  Transmission Date: 20161109
  Serious: No
  Sender: FDA-Public Use
  Company Number: US-INCYTE CORPORATION-2016IN005656

PATIENT
  Sex: Female
  Weight: 38.55 kg

DRUGS (1)
  1. JAKAFI [Suspect]
     Active Substance: RUXOLITINIB
     Dosage: 20 MG, BID (TWICE DAILY)
     Route: 048
     Dates: start: 20160421

REACTIONS (2)
  - Dysphagia [Unknown]
  - Product difficult to swallow [Unknown]
